FAERS Safety Report 21800625 (Version 1)
Quarter: 2022Q4

REPORT INFORMATION
  Report Type: Spontaneous
  Country: IR (occurrence: IR)
  Receive Date: 20221230
  Receipt Date: 20221230
  Transmission Date: 20230113
  Serious: Yes (Hospitalization, Other)
  Sender: FDA-Public Use
  Company Number: IR-KOREA IPSEN Pharma-2022-34598

PATIENT
  Age: 68 Year
  Sex: Male

DRUGS (1)
  1. BOTULINUM TOXIN TYPE A [Suspect]
     Active Substance: BOTULINUM TOXIN TYPE A
     Indication: Blepharospasm
     Dosage: EVERY 6 MONTHS

REACTIONS (7)
  - Ophthalmic herpes zoster [Recovering/Resolving]
  - Herpes zoster meningoencephalitis [Recovering/Resolving]
  - Pyrexia [Unknown]
  - Headache [Unknown]
  - Photophobia [Unknown]
  - Ataxia [Unknown]
  - Swelling of eyelid [Unknown]
